FAERS Safety Report 7690691 (Version 2)
Quarter: 2012Q4

REPORT INFORMATION
  Report Type: 
  Country: CZ (occurrence: CZ)
  Receive Date: 20101203
  Receipt Date: 20121119
  Transmission Date: 20130627
  Serious: Yes (Other)
  Sender: FDA-Public Use
  Company Number: CZ-PFIZER INC-2010144582

PATIENT
  Age: 39 Year
  Sex: Female

DRUGS (1)
  1. METHOTREXATE SODIUM [Suspect]
     Indication: SEROPOSITIVE RHEUMATOID ARTHRITIS
     Dosage: UNK
     Dates: start: 1994, end: 1999

REACTIONS (1)
  - Hepatic enzyme increased [Unknown]
